FAERS Safety Report 11936456 (Version 3)
Quarter: 2016Q1

REPORT INFORMATION
  Report Type: Spontaneous
  Country: NL (occurrence: NL)
  Receive Date: 20160121
  Receipt Date: 20160216
  Transmission Date: 20160526
  Serious: Yes (Death, Hospitalization)
  Sender: FDA-Public Use
  Company Number: NL-TEVA-627841ISR

PATIENT
  Age: 36 Year
  Sex: Male

DRUGS (10)
  1. OXYCODONE [Suspect]
     Active Substance: OXYCODONE
     Dosage: 120 MILLIGRAM DAILY;
  2. DOXAZOSIN [Concomitant]
     Active Substance: DOXAZOSIN\DOXAZOSIN MESYLATE
  3. DEXAMETHASONE. [Suspect]
     Active Substance: DEXAMETHASONE
     Dosage: SINGLE INTRAVENOUS BOLUS
     Route: 040
  4. CARBOPLATIN. [Suspect]
     Active Substance: CARBOPLATIN
     Dosage: FOUR-WEEKLY CYCLES
     Route: 042
  5. ETOPOSIDE. [Suspect]
     Active Substance: ETOPOSIDE
     Dosage: DAYS 1-3 (FOUR-WEEKLY CYCLES)
     Route: 042
  6. DEXAMETHASONE. [Suspect]
     Active Substance: DEXAMETHASONE
  7. FENTANYL. [Suspect]
     Active Substance: FENTANYL
     Route: 062
  8. FENTANYL. [Suspect]
     Active Substance: FENTANYL
     Route: 062
  9. METOCLOPRAMIDE. [Suspect]
     Active Substance: METOCLOPRAMIDE
  10. DEXAMETHASONE. [Suspect]
     Active Substance: DEXAMETHASONE
     Dosage: 16 MILLIGRAM DAILY;

REACTIONS (2)
  - Stress cardiomyopathy [Fatal]
  - Pulmonary embolism [Fatal]
